FAERS Safety Report 22379033 (Version 1)
Quarter: 2023Q2

REPORT INFORMATION
  Report Type: Spontaneous
  Country: AR (occurrence: None)
  Receive Date: 20230529
  Receipt Date: 20230529
  Transmission Date: 20230722
  Serious: Yes (Hospitalization, Other)
  Sender: FDA-Public Use
  Company Number: AR-Orion Corporation ORION PHARMA-ENTC2023-0116

PATIENT
  Age: 77 Year
  Sex: Female

DRUGS (1)
  1. STALEVO [Suspect]
     Active Substance: CARBIDOPA\ENTACAPONE\LEVODOPA
     Indication: Parkinson^s disease
     Dosage: PER MONTH, A BOTTLE OF 200 MG

REACTIONS (2)
  - Hip fracture [Unknown]
  - Parkinson^s disease [Unknown]
